FAERS Safety Report 5911314-8 (Version None)
Quarter: 2008Q4

REPORT INFORMATION
  Report Type: 
  Country: None (occurrence: None)
  Receive Date: 20081007
  Receipt Date: 20080929
  Transmission Date: 20090506
  Serious: Yes (Hospitalization)
  Sender: FDA-Public Use
  Company Number: FR-B.I. PHARMACEUTICALS,INC./RIDGEFIELD-2008-FF-00694FF

PATIENT
  Sex: Female

DRUGS (6)
  1. MICARDIS HCT [Suspect]
     Route: 048
     Dates: start: 20080601, end: 20080730
  2. ENALAPRIL MALEATE AND HYDROCHLOROTHIAZIDE [Concomitant]
     Route: 048
     Dates: start: 20080401, end: 20080501
  3. LERCAN [Concomitant]
     Route: 048
     Dates: start: 20030101
  4. MEDIATENSYL [Concomitant]
     Route: 048
     Dates: start: 20030101
  5. KARDEGIC [Concomitant]
     Route: 048
     Dates: start: 20030101
  6. TEMESTA [Concomitant]
     Route: 048
     Dates: start: 20030101

REACTIONS (3)
  - EOSINOPHILIA [None]
  - PEMPHIGOID [None]
  - PRURITUS [None]
